FAERS Safety Report 7890566-1 (Version None)
Quarter: 2011Q4

REPORT INFORMATION
  Report Type: 
  Country: None (occurrence: None)
  Receive Date: 20111103
  Receipt Date: 20110720
  Transmission Date: 20120403
  Serious: No
  Sender: FDA-Public Use
  Company Number: US-AMGEN-USASP2011037032

PATIENT
  Sex: Male

DRUGS (1)
  1. ENBREL [Suspect]
     Indication: PSORIASIS
     Dosage: 50 MG, Q3MO
     Dates: start: 20041230

REACTIONS (6)
  - HYPOAESTHESIA [None]
  - BACK PAIN [None]
  - MUSCULOSKELETAL PAIN [None]
  - PSORIASIS [None]
  - STRESS [None]
  - PARAESTHESIA [None]
